FAERS Safety Report 23501073 (Version 1)
Quarter: 2024Q1

REPORT INFORMATION
  Report Type: Spontaneous
  Country: None (occurrence: US)
  Receive Date: 20240208
  Receipt Date: 20240208
  Transmission Date: 20240409
  Serious: No
  Sender: FDA-Public Use
  Company Number: US-SERB S.A.S.-2152866

PATIENT
  Age: 58 Year
  Sex: Male

DRUGS (5)
  1. CYANOKIT [Suspect]
     Active Substance: HYDROXOCOBALAMIN
     Indication: Vasoplegia syndrome
     Route: 042
  2. METHYLPREDNISOLONE [Concomitant]
     Active Substance: METHYLPREDNISOLONE
  3. Immunoglobulin [Concomitant]
     Route: 042
  4. Thymoglobulin - Anti-thymocyte gamma globulin [Concomitant]
  5. MYCOPHENOLATE MOFETIL [Concomitant]
     Active Substance: MYCOPHENOLATE MOFETIL

REACTIONS (2)
  - Blood disorder [Unknown]
  - Product use in unapproved indication [Unknown]
